FAERS Safety Report 9096319 (Version 1)
Quarter: 2013Q1

REPORT INFORMATION
  Report Type: Spontaneous
  Country: NO (occurrence: NO)
  Receive Date: 20130207
  Receipt Date: 20130207
  Transmission Date: 20140127
  Serious: Yes (Other)
  Sender: FDA-Public Use
  Company Number: NO-TEVA-384561ISR

PATIENT
  Age: 41 Year
  Sex: Female

DRUGS (1)
  1. CLARITHROMYCIN [Suspect]
     Route: 048

REACTIONS (2)
  - Hyperglycaemia [Recovered/Resolved]
  - Shock hypoglycaemic [Recovered/Resolved]
